FAERS Safety Report 4617535-9 (Version None)
Quarter: 2005Q1

REPORT INFORMATION
  Report Type: 
  Country: None (occurrence: None)
  Receive Date: 20050314
  Receipt Date: 20050303
  Transmission Date: 20050727
  Serious: Yes (Other)
  Sender: FDA-Public Use
  Company Number: 200410458BBE

PATIENT
  Sex: Female

DRUGS (3)
  1. HYPRHO-D [Suspect]
     Indication: PREGNANCY
  2. INJECTABLE GLOBULIN (JOHNSON AND JOHNSON)  (IMMUNOGLOBULIN HUMAN NORMA [Suspect]
  3. INJECTABLE GLOBULIN (ORTHOCLININCAL DIAGNOSTICS)  (IMMUNOGLOBULIN HUMA [Suspect]

REACTIONS (1)
  - ADVERSE EVENT [None]
